FAERS Safety Report 8049624-3 (Version None)
Quarter: 2012Q1

REPORT INFORMATION
  Report Type: 
  Country: None (occurrence: None)
  Receive Date: 20120117
  Receipt Date: 20120106
  Transmission Date: 20120608
  Serious: Yes (Other)
  Sender: FDA-Public Use
  Company Number: FR-SANOFI-AVENTIS-2012SA001121

PATIENT
  Age: 53 Year
  Sex: Female

DRUGS (3)
  1. RIFATER [Suspect]
     Indication: TUBERCULOSIS
     Route: 048
     Dates: start: 20110916, end: 20111018
  2. MYAMBUTOL [Suspect]
     Indication: TUBERCULOSIS
     Route: 048
     Dates: start: 20110916
  3. MYAMBUTOL [Suspect]
     Route: 065
     Dates: start: 20111028

REACTIONS (2)
  - CYTOLYTIC HEPATITIS [None]
  - ABDOMINAL PAIN [None]
